FAERS Safety Report 15829450 (Version 1)
Quarter: 2019Q1

REPORT INFORMATION
  Report Type: Spontaneous
  Country: US (occurrence: US)
  Receive Date: 20190115
  Receipt Date: 20190115
  Transmission Date: 20190417
  Serious: No
  Sender: FDA-Public Use
  Company Number: US-PERRIGO-18US002947

PATIENT
  Sex: Female
  Weight: 68.93 kg

DRUGS (2)
  1. TRETINOIN. [Suspect]
     Active Substance: TRETINOIN
     Indication: CUTANEOUS SYMPTOM
     Dosage: ONE APPLICATION, ONCE NIGHTLY, PRN
     Route: 061
     Dates: start: 2017
  2. TRETINOIN. [Suspect]
     Active Substance: TRETINOIN
     Indication: ACNE
     Dosage: ONE APPLICATION, EVERY OTHER NIGHT
     Route: 061
     Dates: start: 2017

REACTIONS (2)
  - Off label use [Not Recovered/Not Resolved]
  - Application site exfoliation [Not Recovered/Not Resolved]

NARRATIVE: CASE EVENT DATE: 2017
